FAERS Safety Report 9165021 (Version 1)
Quarter: 2013Q1

REPORT INFORMATION
  Report Type: Spontaneous
  Country: US (occurrence: US)
  Receive Date: 20130315
  Receipt Date: 20130315
  Transmission Date: 20140127
  Serious: Yes (Hospitalization, Other)
  Sender: FDA-Public Use
  Company Number: US-BAYER-2013-030865

PATIENT
  Age: 22 Year
  Sex: Female

DRUGS (24)
  1. YAZ [Suspect]
  2. YASMIN [Suspect]
  3. OCELLA [Suspect]
  4. GIANVI [Suspect]
  5. PERCOCET [OXYCODONE HYDROCHLORIDE,OXYCODONE TEREPHTHALATE,PARACETA [Concomitant]
  6. HYDROMORPHONE [Concomitant]
  7. MUPIROCIN [Concomitant]
     Dosage: UNK
     Dates: start: 20100207
  8. XANAX [Concomitant]
     Dosage: UNK
     Dates: start: 20100211
  9. VICODIN [Concomitant]
  10. AMOXICILLIN [Concomitant]
     Dosage: UNK
     Dates: start: 20100131
  11. SUDAFED [Concomitant]
     Dosage: UNK
     Dates: start: 20100131
  12. MORPHINE [Concomitant]
     Dosage: UNK
     Dates: start: 20100201
  13. OXYCONTIN [Concomitant]
  14. IBUPROFEN AL [Concomitant]
     Dosage: UNK
     Dates: start: 20091120
  15. IBUPROFEN AL [Concomitant]
     Dosage: UNK
     Dates: start: 20100202
  16. HUMIRA [Concomitant]
  17. CALCIUM [Concomitant]
  18. PHENERGAN [Concomitant]
     Dosage: UNK
     Dates: start: 20100130
  19. PHENERGAN [Concomitant]
     Dosage: UNK
     Dates: start: 20100202
  20. PROMETHAZINE [PROMETHAZINE] [Concomitant]
     Dosage: UNK
     Dates: start: 20100205
  21. DILAUDID [Concomitant]
     Dosage: UNK
     Dates: start: 20100130
  22. LOMOTIL [DIPHENOXYLATE HYDROCHLORIDE] [Concomitant]
     Dosage: UNK
     Dates: start: 201001
  23. LEVORA [Concomitant]
     Indication: CONTRACEPTION
  24. PREDNISONE [Concomitant]
     Dosage: UNK
     Dates: start: 20100128

REACTIONS (2)
  - Deep vein thrombosis [Recovering/Resolving]
  - Cholecystitis chronic [None]
